FAERS Safety Report 5137765-X (Version None)
Quarter: 2006Q4

REPORT INFORMATION
  Report Type: 
  Country: None (occurrence: None)
  Receive Date: 20061030
  Receipt Date: 20060105
  Transmission Date: 20070319
  Serious: No
  Sender: FDA-Public Use
  Company Number: US-GLAXOSMITHKLINE-A0587949A

PATIENT
  Age: 49 Year
  Sex: Female

DRUGS (4)
  1. ADVAIR HFA [Suspect]
     Indication: ASTHMA
     Dosage: 1PUFF PER DAY
     Route: 055
     Dates: end: 20060101
  2. SINGULAIR [Concomitant]
  3. ZYRTEC [Concomitant]
  4. ZETIA [Concomitant]

REACTIONS (4)
  - PHARMACEUTICAL PRODUCT COMPLAINT [None]
  - PHARYNGITIS STREPTOCOCCAL [None]
  - PHARYNGOLARYNGEAL PAIN [None]
  - UPPER RESPIRATORY TRACT CONGESTION [None]
